FAERS Safety Report 7217564-5 (Version None)
Quarter: 2011Q1

REPORT INFORMATION
  Report Type: 
  Country: None (occurrence: None)
  Receive Date: 20110110
  Receipt Date: 20110105
  Transmission Date: 20110831
  Serious: Yes (Death, Hospitalization)
  Sender: FDA-Public Use
  Company Number: FR-ASTRAZENECA-2011SE00602

PATIENT
  Age: 956 Month
  Sex: Male

DRUGS (7)
  1. ALLOPURINOL [Suspect]
     Route: 048
  2. FURADANTINE [Suspect]
     Route: 048
     Dates: start: 20100612, end: 20100705
  3. TENORMIN [Suspect]
     Route: 048
  4. KARDEGIC [Suspect]
     Route: 048
  5. STAGID [Suspect]
     Route: 048
  6. FURADANTIN [Suspect]
     Route: 048
     Dates: start: 20091201, end: 20100401
  7. APROVEL [Suspect]
     Route: 048

REACTIONS (1)
  - HEPATIC FAILURE [None]
